FAERS Safety Report 7968544-3 (Version None)
Quarter: 2011Q4

REPORT INFORMATION
  Report Type: 
  Country: None (occurrence: None)
  Receive Date: 20111207
  Receipt Date: 20111121
  Transmission Date: 20120403
  Serious: Yes (Hospitalization, Other)
  Sender: FDA-Public Use
  Company Number: NSR_00319_2011

PATIENT
  Age: 48 Year
  Sex: Female

DRUGS (1)
  1. VENLAFAXINE [Suspect]
     Indication: PRODUCT USED FOR UNKNOWN INDICATION
     Dosage: (DF [GREATER THAN 7.5 G])

REACTIONS (31)
  - OVERDOSE [None]
  - DISSOCIATION [None]
  - HYPERREFLEXIA [None]
  - HYPOXIC-ISCHAEMIC ENCEPHALOPATHY [None]
  - COGNITIVE DISORDER [None]
  - LOSS OF CONSCIOUSNESS [None]
  - THINKING ABNORMAL [None]
  - GRAND MAL CONVULSION [None]
  - CEREBROVASCULAR SPASM [None]
  - DEHYDRATION [None]
  - INCOHERENT [None]
  - MEMORY IMPAIRMENT [None]
  - HYPOPERFUSION [None]
  - STATUS EPILEPTICUS [None]
  - TOXICITY TO VARIOUS AGENTS [None]
  - INCONTINENCE [None]
  - STEREOTYPY [None]
  - HYPERTENSION [None]
  - HYPERTHERMIA [None]
  - ACIDOSIS [None]
  - HYPOTENSION [None]
  - PERSONALITY DISORDER [None]
  - HYPOXIA [None]
  - MUSCLE RIGIDITY [None]
  - ABNORMAL BEHAVIOUR [None]
  - SCREAMING [None]
  - NEGATIVISM [None]
  - LETHARGY [None]
  - DISORIENTATION [None]
  - RENAL FAILURE [None]
  - RHABDOMYOLYSIS [None]
